FAERS Safety Report 9129076 (Version 1)
Quarter: 2013Q1

REPORT INFORMATION
  Report Type: Spontaneous
  Country: US (occurrence: US)
  Receive Date: 20130228
  Receipt Date: 20130228
  Transmission Date: 20140127
  Serious: No
  Sender: FDA-Public Use
  Company Number: US-ABBOTT-12P-163-1019496-00

PATIENT
  Sex: Male
  Weight: 141.65 kg

DRUGS (4)
  1. ANDROGEL [Suspect]
     Indication: BLOOD TESTOSTERONE DECREASED
     Dosage: 20.25/1.25 GRAMS, 2 PUMPS TWICE DAILY
     Route: 061
     Dates: start: 20120703
  2. ANDROGEL [Suspect]
     Indication: HYPOGONADISM
  3. ABILIFY [Concomitant]
     Indication: PRODUCT USED FOR UNKNOWN INDICATION
  4. INSULIN [Concomitant]
     Indication: DIABETES MELLITUS

REACTIONS (2)
  - Blood testosterone free decreased [Unknown]
  - Blood testosterone decreased [Unknown]
